FAERS Safety Report 18021344 (Version 3)
Quarter: 2020Q3

REPORT INFORMATION
  Report Type: Other
  Country: US (occurrence: US)
  Receive Date: 20200714
  Receipt Date: 20200730
  Transmission Date: 20201103
  Serious: Yes (Hospitalization, Other)
  Sender: FDA-Public Use
  Company Number: US-ROCHE-2152562

PATIENT
  Age: 59 Year
  Sex: Female
  Weight: 43.13 kg

DRUGS (24)
  1. OCREVUS [Suspect]
     Active Substance: OCRELIZUMAB
     Dosage: FIRST SPLIT DOSE
     Route: 042
     Dates: start: 20170724
  2. VITAMIN C [Concomitant]
     Active Substance: ASCORBIC ACID
  3. POTASSIUM [Concomitant]
     Active Substance: POTASSIUM
  4. MONTELUKAST SODIUM. [Concomitant]
     Active Substance: MONTELUKAST SODIUM
  5. RESTORIL [Concomitant]
     Active Substance: TEMAZEPAM
     Dosage: AT BED TIME PRN
  6. METOPROLOL. [Concomitant]
     Active Substance: METOPROLOL
     Indication: BARRETT^S OESOPHAGUS
     Route: 048
  7. HIZENTRA [Concomitant]
     Active Substance: HUMAN IMMUNOGLOBULIN G
     Route: 065
     Dates: start: 201911
  8. OCREVUS [Suspect]
     Active Substance: OCRELIZUMAB
     Indication: RELAPSING-REMITTING MULTIPLE SCLEROSIS
     Dosage: FULL DOSE?4 TO 5 HOUR INFUSION
     Route: 042
     Dates: start: 20180116
  9. BUTORPHANOL [Concomitant]
     Active Substance: BUTORPHANOL
     Indication: HEADACHE
     Dosage: ONE SPRAY EVERY 4?6 HOURS AS NEEDED
     Route: 055
  10. TEMAZEPAM. [Concomitant]
     Active Substance: TEMAZEPAM
     Dosage: 15MG ONCE A DAY AT BED AS NEEDED
  11. OMEPRAZOLE. [Concomitant]
     Active Substance: OMEPRAZOLE
  12. FLEXERIL [Concomitant]
     Active Substance: CYCLOBENZAPRINE HYDROCHLORIDE
  13. OCREVUS [Suspect]
     Active Substance: OCRELIZUMAB
     Route: 042
     Dates: start: 20180716
  14. OCREVUS [Suspect]
     Active Substance: OCRELIZUMAB
     Dosage: FIRST SPLIT DOSE
     Route: 042
     Dates: start: 20170710
  15. ACETAMINOPHEN. [Concomitant]
     Active Substance: ACETAMINOPHEN
  16. BENADRYL [Concomitant]
     Active Substance: DIPHENHYDRAMINE HYDROCHLORIDE
  17. POTASSIUM CHLORIDE. [Concomitant]
     Active Substance: POTASSIUM CHLORIDE
  18. OCREVUS [Suspect]
     Active Substance: OCRELIZUMAB
     Indication: PRIMARY PROGRESSIVE MULTIPLE SCLEROSIS
     Route: 042
     Dates: start: 20190619
  19. DIAZEPAM. [Suspect]
     Active Substance: DIAZEPAM
     Indication: MUSCLE SPASMS
     Dosage: 10 MG ONCE A DAY AT BEDTIME AS NEEDED
     Route: 048
  20. PROLIA [Concomitant]
     Active Substance: DENOSUMAB
  21. DIAZEPAM. [Suspect]
     Active Substance: DIAZEPAM
     Indication: MUSCLE SPASMS
  22. ELIQUIS [Concomitant]
     Active Substance: APIXABAN
  23. OXYGEN. [Concomitant]
     Active Substance: OXYGEN
     Dosage: 2 LITER AT NIGHT
  24. CYCLOBENZAPRINE. [Concomitant]
     Active Substance: CYCLOBENZAPRINE
     Indication: FIBROMYALGIA
     Dates: start: 1990

REACTIONS (26)
  - Electrocardiogram abnormal [Unknown]
  - Memory impairment [Not Recovered/Not Resolved]
  - Urinary tract infection [Recovered/Resolved]
  - Hallucination [Recovered/Resolved]
  - Nausea [Recovered/Resolved]
  - Immune system disorder [Not Recovered/Not Resolved]
  - Multiple sclerosis relapse [Unknown]
  - Hypoaesthesia [Not Recovered/Not Resolved]
  - Arthropathy [Not Recovered/Not Resolved]
  - Impaired work ability [Not Recovered/Not Resolved]
  - Contusion [Not Recovered/Not Resolved]
  - Gait disturbance [Not Recovered/Not Resolved]
  - Headache [Not Recovered/Not Resolved]
  - Back pain [Not Recovered/Not Resolved]
  - Weight decreased [Recovered/Resolved]
  - Therapeutic response decreased [Unknown]
  - Barrett^s oesophagus [Not Recovered/Not Resolved]
  - Muscle spasms [Not Recovered/Not Resolved]
  - Arthralgia [Not Recovered/Not Resolved]
  - Off label use [Unknown]
  - Fatigue [Not Recovered/Not Resolved]
  - Pain [Not Recovered/Not Resolved]
  - Neurogenic bladder [Not Recovered/Not Resolved]
  - Dysstasia [Not Recovered/Not Resolved]
  - Chronic obstructive pulmonary disease [Recovered/Resolved]
  - Muscular weakness [Recovered/Resolved]

NARRATIVE: CASE EVENT DATE: 2018
